FAERS Safety Report 20642778 (Version 2)
Quarter: 2022Q2

REPORT INFORMATION
  Report Type: Spontaneous
  Country: JP (occurrence: JP)
  Receive Date: 20220328
  Receipt Date: 20220413
  Transmission Date: 20220721
  Serious: Yes (Hospitalization, Other)
  Sender: FDA-Public Use
  Company Number: JP-ORGANON-O2203JPN000591J

PATIENT
  Age: 47 Year
  Sex: Male

DRUGS (2)
  1. PROPECIA [Suspect]
     Active Substance: FINASTERIDE
     Indication: Androgenetic alopecia
     Dosage: UNK
     Route: 048
  2. MINOXIDIL [Suspect]
     Active Substance: MINOXIDIL
     Indication: Androgenetic alopecia
     Dosage: UNK
     Route: 048

REACTIONS (1)
  - Cerebellar infarction [Recovered/Resolved]
